FAERS Safety Report 18249837 (Version 1)
Quarter: 2020Q3

REPORT INFORMATION
  Report Type: Spontaneous
  Country: FR (occurrence: FR)
  Receive Date: 20200910
  Receipt Date: 20200910
  Transmission Date: 20201103
  Serious: Yes (Other)
  Sender: FDA-Public Use
  Company Number: FR-SUN PHARMACEUTICAL INDUSTRIES LTD-2020RR-260543

PATIENT
  Age: 24 Year
  Sex: Female

DRUGS (3)
  1. LYRICA [Suspect]
     Active Substance: PREGABALIN
     Indication: DRUG ABUSE
     Dosage: UNSPECIFIED ()
     Route: 065
  2. PANTOPRAZOLE [Suspect]
     Active Substance: PANTOPRAZOLE
     Indication: DRUG ABUSE
     Dosage: UNSPECIFIED ()
     Route: 065
  3. FLECTOR [Suspect]
     Active Substance: DICLOFENAC EPOLAMINE
     Indication: DRUG ABUSE
     Dosage: UNSPECIFIED ()
     Route: 065

REACTIONS (1)
  - Drug abuse [Not Recovered/Not Resolved]
